FAERS Safety Report 21692062 (Version 1)
Quarter: 2022Q4

REPORT INFORMATION
  Report Type: Spontaneous
  Country: BR (occurrence: None)
  Receive Date: 20221207
  Receipt Date: 20221207
  Transmission Date: 20230113
  Serious: Yes (Other)
  Sender: FDA-Public Use
  Company Number: BR-ROCHE-3232089

PATIENT
  Age: 37 Year
  Sex: Female
  Weight: 75 kg

DRUGS (6)
  1. RIVOTRIL [Suspect]
     Active Substance: CLONAZEPAM
     Indication: Headache
     Dosage: 2 TABLET, DAILY (WITH A DOSAGE OF 1 TABLET IN THE MORNING AND 1 TABLET IN THE EVENING), ONGOING
     Route: 048
     Dates: start: 1994
  2. RIVOTRIL [Suspect]
     Active Substance: CLONAZEPAM
     Indication: Headache
     Dosage: DROPS
     Route: 048
  3. LOSARTAN [Concomitant]
     Active Substance: LOSARTAN
     Dosage: 2 TABLET DAILY.
     Route: 048
     Dates: start: 2019
  4. ATENOLOL [Concomitant]
     Active Substance: ATENOLOL
     Dosage: 1 TABLET DAILY.
     Route: 048
     Dates: start: 2019
  5. TORSILAX [Concomitant]
     Active Substance: ACETAMINOPHEN\CAFFEINE\CARISOPRODOL\DICLOFENAC
     Dosage: 1 TABLET IF NECESSARY
     Route: 048
     Dates: start: 2012
  6. DIPYRONE [Concomitant]
     Active Substance: DIPYRONE

REACTIONS (3)
  - Drug dependence [Not Recovered/Not Resolved]
  - Off label use [Unknown]
  - Withdrawal syndrome [Recovering/Resolving]

NARRATIVE: CASE EVENT DATE: 20050616
